FAERS Safety Report 9842139 (Version 11)
Quarter: 2015Q1

REPORT INFORMATION
  Report Type: Report from Study
  Country: US (occurrence: US)
  Receive Date: 20140124
  Receipt Date: 20150204
  Transmission Date: 20150721
  Serious: Yes (Hospitalization, Other)
  Sender: FDA-Public Use
  Company Number: US-ALEXION-A201400071

PATIENT

DRUGS (17)
  1. FOLIC ACID. [Concomitant]
     Active Substance: FOLIC ACID
     Indication: PRODUCT USED FOR UNKNOWN INDICATION
     Dosage: 4000 ?G, QD
     Route: 065
     Dates: start: 20130627
  2. LISINOPRIL. [Concomitant]
     Active Substance: LISINOPRIL
     Indication: HYPERTENSION
     Dosage: 10 MG, QD
     Route: 065
     Dates: start: 20130627
  3. RITUXIMAB [Concomitant]
     Active Substance: RITUXIMAB
     Indication: SPLEEN DISORDER
     Dosage: UNK
     Route: 065
     Dates: start: 201412
  4. SOLIRIS [Suspect]
     Active Substance: ECULIZUMAB
     Dosage: 900 MG, Q2W
     Route: 042
  5. LEVOTHYROXINE [Concomitant]
     Active Substance: LEVOTHYROXINE
     Indication: PRODUCT USED FOR UNKNOWN INDICATION
     Dosage: 25 ?G, QD
     Route: 065
     Dates: start: 20130627
  6. ZOFRAN                             /00955301/ [Concomitant]
     Active Substance: ONDANSETRON HYDROCHLORIDE
     Indication: PRODUCT USED FOR UNKNOWN INDICATION
     Dosage: 4 MG, PRN
     Route: 065
     Dates: start: 20130627
  7. VITAMIN D3 [Concomitant]
     Active Substance: CHOLECALCIFEROL
     Indication: PRODUCT USED FOR UNKNOWN INDICATION
     Dosage: 1000 IU, QD
     Route: 065
     Dates: start: 20130627
  8. STEROIDS [Concomitant]
     Active Substance: UNSPECIFIED INGREDIENT
     Indication: OSTEOPOROSIS
     Route: 065
  9. SOLIRIS [Suspect]
     Active Substance: ECULIZUMAB
     Indication: PAROXYSMAL NOCTURNAL HAEMOGLOBINURIA
     Dosage: 900 MG, Q2W
     Route: 042
     Dates: start: 20130711
  10. PREDNISONE. [Suspect]
     Active Substance: PREDNISONE
     Indication: SPLEEN DISORDER
  11. FOSAMAX [Concomitant]
     Active Substance: ALENDRONATE SODIUM
     Indication: OSTEOPOROSIS
     Dosage: 70 MG, 1 TABLET PER WEEK
     Route: 065
     Dates: start: 20130627
  12. WARFARIN [Concomitant]
     Active Substance: WARFARIN
     Indication: ANTICOAGULANT THERAPY
     Dosage: DOSE VARIES, QD
     Route: 065
     Dates: start: 20130627
  13. COUMADIN [Concomitant]
     Active Substance: WARFARIN SODIUM
     Indication: PRODUCT USED FOR UNKNOWN INDICATION
     Dosage: UNK
     Route: 065
  14. PREDNISONE. [Suspect]
     Active Substance: PREDNISONE
     Indication: VOMITING
  15. PREDNISONE. [Suspect]
     Active Substance: PREDNISONE
     Indication: NAUSEA
     Dosage: 60 MG, QD
     Route: 048
  16. SERTRALINE [Concomitant]
     Active Substance: SERTRALINE HYDROCHLORIDE
     Indication: PRODUCT USED FOR UNKNOWN INDICATION
     Dosage: 100 MG, QD
     Route: 065
     Dates: start: 20130627
  17. HYDROCODONE BITARTRATE AND ACETAMINOPHEN [Concomitant]
     Active Substance: ACETAMINOPHEN\HYDROCODONE BITARTRATE
     Indication: PAIN
     Dosage: UNK, 5-325 MG
     Route: 065
     Dates: start: 20130627

REACTIONS (19)
  - Haemoglobin decreased [Unknown]
  - Pyrexia [Unknown]
  - Unevaluable event [Unknown]
  - Contusion [Recovering/Resolving]
  - Malaise [Unknown]
  - Viral infection [Unknown]
  - Nausea [Unknown]
  - Gait disturbance [Unknown]
  - Abdominal pain upper [Unknown]
  - Haemoglobin decreased [Unknown]
  - Vomiting [Unknown]
  - Cholelithiasis [Unknown]
  - Packed red blood cell transfusion [Unknown]
  - Chills [Unknown]
  - Immune system disorder [Unknown]
  - Haemoglobin abnormal [Unknown]
  - Pain [Unknown]
  - Eructation [Unknown]
  - Nasopharyngitis [Not Recovered/Not Resolved]

NARRATIVE: CASE EVENT DATE: 20140108
